FAERS Safety Report 16482511 (Version 1)
Quarter: 2019Q2

REPORT INFORMATION
  Report Type: Spontaneous
  Country: US (occurrence: US)
  Receive Date: 20190627
  Receipt Date: 20190627
  Transmission Date: 20190711
  Serious: No
  Sender: FDA-Public Use
  Company Number: US-APOTEX-2019AP013576

PATIENT
  Age: 61 Year
  Sex: Female

DRUGS (1)
  1. DILT-XR [Suspect]
     Active Substance: DILTIAZEM
     Indication: BLOOD PRESSURE MEASUREMENT
     Dosage: UNK
     Route: 065

REACTIONS (2)
  - Hypertension [Unknown]
  - Drug ineffective [Unknown]
